FAERS Safety Report 20488232 (Version 1)
Quarter: 2022Q1

REPORT INFORMATION
  Report Type: Report from Study
  Country: US (occurrence: None)
  Receive Date: 20220218
  Receipt Date: 20220218
  Transmission Date: 20220423
  Serious: Yes (Other)
  Sender: FDA-Public Use
  Company Number: 2022A069401

PATIENT
  Age: 73 Year
  Sex: Female

DRUGS (2)
  1. LYNPARZA [Suspect]
     Active Substance: OLAPARIB
     Dosage: UNKNOWN
     Route: 048
     Dates: start: 20220210
  2. LYNPARZA [Suspect]
     Active Substance: OLAPARIB
     Dosage: UNKNOWN
     Route: 048

REACTIONS (1)
  - Toxicity to various agents [Unknown]

NARRATIVE: CASE EVENT DATE: 20220210
